FAERS Safety Report 12497315 (Version 4)
Quarter: 2016Q4

REPORT INFORMATION
  Report Type: Spontaneous
  Country: US (occurrence: US)
  Receive Date: 20160624
  Receipt Date: 20161021
  Transmission Date: 20170207
  Serious: Yes (Hospitalization, Other)
  Sender: FDA-Public Use
  Company Number: US-PFIZER INC-2016313349

PATIENT
  Age: 63 Year
  Sex: Female
  Weight: 77.11 kg

DRUGS (24)
  1. GABAPENTIN. [Suspect]
     Active Substance: GABAPENTIN
     Indication: MIGRAINE
     Dosage: 100 MG, 2X/DAY
     Route: 048
     Dates: start: 201501, end: 201504
  2. ALEVE [Concomitant]
     Active Substance: NAPROXEN SODIUM
     Indication: ARTHRITIS
     Dosage: 1 IN THE MORNING AND 1 AT NIGHT
  3. BOTOX [Concomitant]
     Active Substance: ONABOTULINUMTOXINA
     Dosage: UNK
     Dates: start: 201412
  4. TOPROL XL [Concomitant]
     Active Substance: METOPROLOL SUCCINATE
     Indication: HYPERTENSION
     Dosage: 25 MG, 1X/DAY
     Dates: start: 2001
  5. HYDROCODONE [Concomitant]
     Active Substance: HYDROCODONE
     Dosage: UNK
     Dates: start: 2004
  6. METHADONE HCL [Concomitant]
     Active Substance: METHADONE HYDROCHLORIDE
     Dosage: UNK UNK, 2X/DAY  (10 MG 1/2 TABLET  2X @ D)
     Dates: start: 2014, end: 2015
  7. HYDROCODONE BITARTRATE AND ACETAMINOPHEN [Concomitant]
     Active Substance: ACETAMINOPHEN\HYDROCODONE BITARTRATE
     Dosage: UNK  (HYDROCODONE 5 MG, ACETAMINOPHEN 325 MG 1/2 TAB 1-2 A DAY)
     Dates: start: 2014, end: 201602
  8. COENZYME Q10 [Concomitant]
     Active Substance: UBIDECARENONE
     Dosage: UNK, (NOT EVERY DAY)
  9. FENTANYL. [Concomitant]
     Active Substance: FENTANYL
     Dosage: UNK
     Dates: start: 2013
  10. WELLBUTRIN [Concomitant]
     Active Substance: BUPROPION HYDROCHLORIDE
     Indication: PAIN
     Dosage: 150 MG, 2X/DAY
     Dates: start: 2007
  11. TOPROL XL [Concomitant]
     Active Substance: METOPROLOL SUCCINATE
     Dosage: 25 MG, UNK
     Dates: start: 2000
  12. GABAPENTIN. [Suspect]
     Active Substance: GABAPENTIN
     Dosage: 100 MG, 3X/DAY
     Dates: start: 201501, end: 20150408
  13. VITAMIN D [Concomitant]
     Active Substance: CHOLECALCIFEROL
     Dosage: UNK, (NOT EVERY DAY)
  14. WELLBUTRIN [Concomitant]
     Active Substance: BUPROPION HYDROCHLORIDE
     Indication: FIBROMYALGIA
     Dosage: 150 MG, 2X/DAY
     Dates: start: 200501
  15. XANAX [Concomitant]
     Active Substance: ALPRAZOLAM
     Dosage: UNK (.05-1-3 @ DAY)
  16. ALEVE [Concomitant]
     Active Substance: NAPROXEN SODIUM
     Dosage: UNK, (NOT EACH DAY)
     Dates: start: 2014
  17. FENTANYL. [Concomitant]
     Active Substance: FENTANYL
     Dosage: UNK
     Dates: start: 2014
  18. XANAX [Concomitant]
     Active Substance: ALPRAZOLAM
     Dosage: UNK
     Dates: start: 2007
  19. SERTRALINE HCL [Concomitant]
     Active Substance: SERTRALINE HYDROCHLORIDE
     Dosage: UNK UNK, 1X/DAY (25 MG 1/2 TAB X 1 @ DAY)
     Dates: start: 2015, end: 2016
  20. VITAMIN B [Concomitant]
     Active Substance: VITAMIN B
     Dosage: UNK, (NOT EVERY DAY)
  21. GABAPENTIN. [Suspect]
     Active Substance: GABAPENTIN
     Dosage: 200 MG, 2X/DAY (2 CAPS X 2TIMES @ D)
  22. HYDROCODONE [Concomitant]
     Active Substance: HYDROCODONE
     Indication: PAIN
     Dosage: 2 TO 3 350MG DAILY
     Dates: start: 2005, end: 2016
  23. XANAX [Concomitant]
     Active Substance: ALPRAZOLAM
     Indication: PAIN
     Dosage: 0.5MG 2 TO 3 TABLETS PER DAY
     Dates: start: 2009
  24. BOTULINUM TOXIN TYPE A [Concomitant]
     Active Substance: BOTULINUM TOXIN TYPE A
     Indication: MIGRAINE
     Dosage: UNK
     Dates: start: 201412, end: 20160320

REACTIONS (16)
  - Gingival pain [Not Recovered/Not Resolved]
  - Feeding disorder [Not Recovered/Not Resolved]
  - Pain [Not Recovered/Not Resolved]
  - Drug ineffective for unapproved indication [Not Recovered/Not Resolved]
  - Intentional product use issue [Unknown]
  - Feeling abnormal [Recovered/Resolved]
  - Gingival bleeding [Unknown]
  - Drug intolerance [Unknown]
  - Sudden onset of sleep [Recovered/Resolved]
  - Fall [Recovered/Resolved]
  - Tooth fracture [Not Recovered/Not Resolved]
  - Oral pain [Not Recovered/Not Resolved]
  - Loss of consciousness [Not Recovered/Not Resolved]
  - Impaired driving ability [Recovered/Resolved]
  - Somnolence [Not Recovered/Not Resolved]
  - Mastication disorder [Not Recovered/Not Resolved]

NARRATIVE: CASE EVENT DATE: 201501
